FAERS Safety Report 17212220 (Version 2)
Quarter: 2020Q1

REPORT INFORMATION
  Report Type: Spontaneous
  Country: US (occurrence: US)
  Receive Date: 20191230
  Receipt Date: 20200103
  Transmission Date: 20200409
  Serious: No
  Sender: FDA-Public Use
  Company Number: US-ELI_LILLY_AND_COMPANY-US201912008811

PATIENT
  Sex: Female

DRUGS (2)
  1. HUMALOG KWIKPEN [Suspect]
     Active Substance: INSULIN LISPRO
     Indication: PRODUCT USED FOR UNKNOWN INDICATION
     Dosage: UNK, UNKNOWN
     Route: 065
  2. LANTUS [Concomitant]
     Active Substance: INSULIN GLARGINE
     Indication: PRODUCT USED FOR UNKNOWN INDICATION

REACTIONS (9)
  - Post-traumatic neck syndrome [Unknown]
  - Muscle disorder [Unknown]
  - Anxiety [Unknown]
  - Hand deformity [Unknown]
  - Dysgraphia [Unknown]
  - Road traffic accident [Unknown]
  - Memory impairment [Unknown]
  - Crying [Unknown]
  - Pain in extremity [Recovering/Resolving]
